FAERS Safety Report 11309732 (Version 1)
Quarter: 2015Q3

REPORT INFORMATION
  Report Type: Spontaneous
  Country: DE (occurrence: DE)
  Receive Date: 20150724
  Receipt Date: 20150724
  Transmission Date: 20151125
  Serious: Yes (Hospitalization)
  Sender: FDA-Public Use
  Company Number: DE-TEVA-579633GER

PATIENT
  Age: 59 Year
  Sex: Female

DRUGS (4)
  1. LYRICA [Concomitant]
     Active Substance: PREGABALIN
     Indication: TUMOUR PAIN
     Dosage: 150 MILLIGRAM DAILY;
     Route: 048
  2. NOVAMIN [Concomitant]
     Active Substance: PROCHLORPERAZINE MALEATE
     Indication: TUMOUR PAIN
     Dosage: 2000 MILLIGRAM DAILY;
     Route: 048
  3. FENTANYL PFLASTER [Concomitant]
     Active Substance: FENTANYL
     Indication: TUMOUR PAIN
     Route: 062
  4. EFFENTORA 200 [Suspect]
     Active Substance: FENTANYL CITRATE
     Indication: TUMOUR PAIN
     Route: 002
     Dates: start: 20150624

REACTIONS (2)
  - Angioedema [Not Recovered/Not Resolved]
  - Drug dose titration not performed [Unknown]

NARRATIVE: CASE EVENT DATE: 20150626
